FAERS Safety Report 9011006 (Version 1)
Quarter: 2013Q1

REPORT INFORMATION
  Report Type: Spontaneous
  Country: US (occurrence: US)
  Receive Date: 20130109
  Receipt Date: 20130109
  Transmission Date: 20140127
  Serious: No
  Sender: FDA-Public Use
  Company Number: US-B.I. PHARMACEUTICALS,INC./RIDGEFIELD-2012-BI-04099BP

PATIENT
  Sex: Female
  Weight: 64 kg

DRUGS (1)
  1. MOBIC [Suspect]
     Indication: ARTHRITIS
     Route: 048

REACTIONS (2)
  - Atrial fibrillation [Unknown]
  - Heart rate increased [Recovered/Resolved]
